FAERS Safety Report 7119798-7 (Version None)
Quarter: 2010Q4

REPORT INFORMATION
  Report Type: 
  Country: None (occurrence: None)
  Receive Date: 20101123
  Receipt Date: 20100824
  Transmission Date: 20110411
  Serious: No
  Sender: FDA-Public Use
  Company Number: US-BRISTOL-MYERS SQUIBB COMPANY-15252968

PATIENT
  Age: 54 Year
  Sex: Female

DRUGS (4)
  1. ONGLYZA [Suspect]
     Dosage: STARTED 90DAYS AGO
  2. METFORMIN HCL [Concomitant]
  3. LANTUS [Concomitant]
  4. IBUPROFEN [Concomitant]

REACTIONS (3)
  - ARTHRALGIA [None]
  - BURNING SENSATION [None]
  - SWELLING [None]
